FAERS Safety Report 7639251-1 (Version None)
Quarter: 2011Q3

REPORT INFORMATION
  Report Type: 
  Country: None (occurrence: None)
  Receive Date: 20110727
  Receipt Date: 20110721
  Transmission Date: 20111222
  Serious: Yes (Other)
  Sender: FDA-Public Use
  Company Number: US-MERCK-1104USA03711

PATIENT
  Age: 47 Year
  Sex: Male
  Weight: 77 kg

DRUGS (1)
  1. IVEMEND [Suspect]
     Indication: ANTIEMETIC SUPPORTIVE CARE
     Route: 065
     Dates: start: 20110425, end: 20110425

REACTIONS (4)
  - FEELING HOT [None]
  - HYPERSENSITIVITY [None]
  - FLUSHING [None]
  - INFUSION SITE REACTION [None]
